FAERS Safety Report 5181714-5 (Version None)
Quarter: 2006Q4

REPORT INFORMATION
  Report Type: 
  Country: None (occurrence: None)
  Receive Date: 20061220
  Receipt Date: 20060228
  Transmission Date: 20070319
  Serious: No
  Sender: FDA-Public Use
  Company Number: US-GLAXOSMITHKLINE-A0595480A

PATIENT
  Age: 61 Year
  Sex: Female

DRUGS (2)
  1. COMMIT [Suspect]
     Dates: start: 20060224, end: 20060224
  2. BLOOD PRESSURE MEDICATION [Concomitant]
     Route: 048

REACTIONS (6)
  - CHILLS [None]
  - DIARRHOEA [None]
  - HEADACHE [None]
  - NAUSEA [None]
  - PYREXIA [None]
  - VOMITING [None]
